FAERS Safety Report 4505442-1 (Version None)
Quarter: 2004Q4

REPORT INFORMATION
  Report Type: 
  Country: None (occurrence: None)
  Receive Date: 20041119
  Receipt Date: 20040729
  Transmission Date: 20050328
  Serious: Yes (Hospitalization, Other)
  Sender: FDA-Public Use
  Company Number: PHBS2004JP10123

PATIENT
  Age: 34 Year
  Sex: Female

DRUGS (5)
  1. TEGRETOL [Suspect]
     Indication: TRIGEMINAL NEURALGIA
     Dosage: 600 MG/DAY
     Route: 048
     Dates: start: 20040522, end: 20040524
  2. TEGRETOL [Suspect]
     Dosage: 100 TO 400 MG/DAY
     Route: 048
     Dates: start: 20040525, end: 20040609
  3. LOXONIN [Suspect]
     Dosage: 180 MG/DAY
     Route: 048
     Dates: start: 20040514, end: 20040605
  4. MYONAL [Suspect]
     Dosage: 150 MG/DAY
     Route: 048
     Dates: start: 20040514, end: 20040605
  5. SELBEX [Suspect]
     Dosage: 150 MG/DAY
     Route: 048
     Dates: start: 20040514, end: 20040605

REACTIONS (16)
  - CONFUSIONAL STATE [None]
  - DERMATITIS [None]
  - DIZZINESS [None]
  - EAR PAIN [None]
  - FACE OEDEMA [None]
  - FEELING ABNORMAL [None]
  - GAIT DISTURBANCE [None]
  - HALLUCINATION, AUDITORY [None]
  - HYPOAESTHESIA ORAL [None]
  - MIGRAINE [None]
  - MUCOCUTANEOUS RASH [None]
  - POLYDIPSIA [None]
  - PSYCHOTIC DISORDER [None]
  - SKIN REACTION [None]
  - STOMATITIS [None]
  - THIRST [None]
